FAERS Safety Report 21228136 (Version 1)
Quarter: 2022Q3

REPORT INFORMATION
  Report Type: Spontaneous
  Country: US (occurrence: None)
  Receive Date: 20220817
  Receipt Date: 20220817
  Transmission Date: 20221027
  Serious: Yes (Death, Hospitalization)
  Sender: FDA-Public Use
  Company Number: None

PATIENT
  Age: 81 Year
  Sex: Male

DRUGS (1)
  1. CAPECITABINE [Suspect]
     Active Substance: CAPECITABINE
     Dosage: 1500MG BID ORAL
     Route: 048
     Dates: start: 202208, end: 202208

REACTIONS (4)
  - Weight decreased [None]
  - Eating disorder [None]
  - Infusion related reaction [None]
  - Drug intolerance [None]

NARRATIVE: CASE EVENT DATE: 20220801
